FAERS Safety Report 7241382-5 (Version None)
Quarter: 2011Q1

REPORT INFORMATION
  Report Type: 
  Country: None (occurrence: None)
  Receive Date: 20110124
  Receipt Date: 20110111
  Transmission Date: 20110831
  Serious: Yes (Other)
  Sender: FDA-Public Use
  Company Number: JP-CELGENEUS-087-21880-11010915

PATIENT
  Sex: Male

DRUGS (11)
  1. REVLIMID [Suspect]
     Indication: MULTIPLE MYELOMA
     Route: 048
     Dates: start: 20101130, end: 20101206
  2. VALTREX [Concomitant]
     Indication: PROPHYLAXIS
     Route: 048
     Dates: end: 20110106
  3. REVLIMID [Suspect]
     Route: 048
     Dates: start: 20101218, end: 20101228
  4. CRESTOR [Concomitant]
     Route: 048
     Dates: end: 20110106
  5. LORFENAMIN [Concomitant]
     Route: 048
     Dates: end: 20110106
  6. OMEPRAL [Concomitant]
     Indication: PROPHYLAXIS
     Route: 048
     Dates: end: 20110106
  7. ITRIZOLE [Concomitant]
     Indication: PROPHYLAXIS
     Route: 048
     Dates: end: 20110106
  8. REVLIMID [Suspect]
     Route: 048
     Dates: start: 20101211, end: 20101213
  9. ALOSITOL [Concomitant]
     Route: 048
     Dates: end: 20110106
  10. LENADEX [Suspect]
     Indication: MULTIPLE MYELOMA
     Route: 048
     Dates: start: 20101130, end: 20101203
  11. BAKTAR [Concomitant]
     Indication: PROPHYLAXIS
     Route: 048
     Dates: end: 20110106

REACTIONS (4)
  - NEUTROPENIA [None]
  - DEVICE RELATED INFECTION [None]
  - LIVER DISORDER [None]
  - RASH [None]
